FAERS Safety Report 6917621-4 (Version None)
Quarter: 2010Q3

REPORT INFORMATION
  Report Type: 
  Country: None (occurrence: None)
  Receive Date: 20100810
  Receipt Date: 20100728
  Transmission Date: 20110219
  Serious: Yes (Hospitalization, Other)
  Sender: FDA-Public Use
  Company Number: BR-MEDIMMUNE-MEDI-0011462

PATIENT
  Sex: Female
  Weight: 4.5 kg

DRUGS (4)
  1. SYNAGIS [Suspect]
     Route: 030
     Dates: start: 20100602
  2. CAPTOPRIL [Concomitant]
     Indication: BLOOD PRESSURE MANAGEMENT
     Route: 048
     Dates: start: 20091201
  3. FUROSEMIDE [Concomitant]
     Route: 048
     Dates: start: 20091019
  4. DIGOXIN [Concomitant]
     Route: 048
     Dates: start: 20100201

REACTIONS (6)
  - ANURIA [None]
  - CARDIAC ARREST [None]
  - CARDIAC OPERATION [None]
  - LUNG INFECTION [None]
  - OXYGEN SATURATION DECREASED [None]
  - SWELLING [None]
